FAERS Safety Report 4633193-1 (Version None)
Quarter: 2005Q2

REPORT INFORMATION
  Report Type: 
  Country: None (occurrence: None)
  Receive Date: 20050411
  Receipt Date: 20050411
  Transmission Date: 20051028
  Serious: Yes (Other)
  Sender: FDA-Public Use
  Company Number: None

PATIENT
  Age: 61 Year
  Sex: Female
  Weight: 71.6683 kg

DRUGS (1)
  1. ZOCOR [Suspect]
     Dosage: 40 MG 1X DAILY ORAL
     Route: 048
     Dates: start: 20040408, end: 20040715

REACTIONS (8)
  - ANXIETY [None]
  - ANXIETY DISORDER [None]
  - DEPRESSION [None]
  - EMOTIONAL DISORDER [None]
  - MOOD ALTERED [None]
  - PANIC ATTACK [None]
  - PANIC DISORDER [None]
  - SERUM SEROTONIN DECREASED [None]
